FAERS Safety Report 6404013-X (Version None)
Quarter: 2009Q4

REPORT INFORMATION
  Report Type: 
  Country: None (occurrence: None)
  Receive Date: 20091016
  Receipt Date: 20090721
  Transmission Date: 20100525
  Serious: No
  Sender: FDA-Public Use
  Company Number: US-ALEXION-A200900592

PATIENT
  Sex: Male

DRUGS (9)
  1. SOLIRIS [Suspect]
     Dosage: 600 MG, QW
     Route: 042
     Dates: start: 20090409, end: 20090423
  2. SOLIRIS [Suspect]
     Dosage: 900 MG
     Route: 042
     Dates: start: 20090507
  3. COUMADIN [Suspect]
     Indication: ATRIAL FIBRILLATION
     Dosage: AS DIRECTED
  4. SIMVASTATIN [Concomitant]
     Dosage: 20 MG, QD
  5. LISINOPRIL [Concomitant]
     Dosage: 10 MG, QD
  6. ATENOLOL [Concomitant]
     Dosage: 50 MG, QD
  7. ASPIRIN [Concomitant]
     Dosage: 81 MG, QD
  8. VITAMIN B12                        /00056201/ [Concomitant]
     Dosage: 1000 MEQ, QD
  9. FOLIC ACID [Concomitant]
     Dosage: 1 MG, QD

REACTIONS (2)
  - CONTUSION [None]
  - MALAISE [None]
